FAERS Safety Report 7085270-6 (Version None)
Quarter: 2010Q4

REPORT INFORMATION
  Report Type: 
  Country: None (occurrence: None)
  Receive Date: 20101028
  Receipt Date: 20101019
  Transmission Date: 20110411
  Serious: Yes (Hospitalization)
  Sender: FDA-Public Use
  Company Number: WAES 0801USA00448

PATIENT
  Age: 69 Year
  Sex: Male

DRUGS (3)
  1. HYZAAR [Suspect]
     Dosage: 50/12.5 MG/DAILY
     Route: 048
     Dates: start: 20070820, end: 20071203
  2. DIGOXIN [Suspect]
     Dosage: 250 MICROGM/DAILY
     Route: 048
     Dates: start: 19850309, end: 20071202
  3. CARDURA [Suspect]
     Dosage: 4 MG/DAILY
     Route: 048
     Dates: start: 20060422, end: 20071204

REACTIONS (3)
  - BRADYCARDIA [None]
  - FALL [None]
  - SYNCOPE [None]
